FAERS Safety Report 7632911-8 (Version None)
Quarter: 2011Q3

REPORT INFORMATION
  Report Type: 
  Country: None (occurrence: None)
  Receive Date: 20110725
  Receipt Date: 20110713
  Transmission Date: 20111222
  Serious: Yes (Other)
  Sender: FDA-Public Use
  Company Number: PHFR2010IE06003

PATIENT
  Sex: Male

DRUGS (12)
  1. MOVIPREP [Concomitant]
     Dosage: 1 DF, QD
     Route: 048
  2. CHLORPROMAZINE [Concomitant]
     Dosage: UNK DF, UNK
  3. NU-SEALS ASPIRIN [Concomitant]
     Dosage: 75 MG, QD
  4. RISPERIDONE [Concomitant]
     Dosage: 5 MG, QD
  5. OLANZAPINE [Suspect]
     Dosage: UNK
  6. AMISULPRIDE [Suspect]
     Indication: SCHIZOPHRENIA
     Dosage: UNK DF, UNK
     Dates: start: 20000101
  7. LIPITOR [Concomitant]
     Dosage: 10 MG, QD
  8. ALBUTEROL [Concomitant]
     Indication: CHRONIC OBSTRUCTIVE PULMONARY DISEASE
     Dosage: 2 DF, TID
  9. MOVIPREP [Concomitant]
     Dosage: 1 DF, BID
  10. CLOZAPINE [Suspect]
     Indication: SCHIZOPHRENIA
     Dosage: 500 MG, QD
     Route: 048
     Dates: start: 20021025, end: 20110202
  11. ZOPICLONE [Concomitant]
     Dosage: 7.5 MG NOCTE
  12. OMEPRAZOLE [Concomitant]
     Dosage: 20 MG, QD

REACTIONS (30)
  - GENERAL PHYSICAL HEALTH DETERIORATION [None]
  - MEAN CELL VOLUME ABNORMAL [None]
  - INSOMNIA [None]
  - TEARFULNESS [None]
  - RED BLOOD CELL COUNT INCREASED [None]
  - NEUTROPENIA [None]
  - WHITE BLOOD CELL COUNT DECREASED [None]
  - BLOOD ALKALINE PHOSPHATASE INCREASED [None]
  - HAEMATOCRIT INCREASED [None]
  - SPLENOMEGALY [None]
  - DISTURBANCE IN ATTENTION [None]
  - SOMNOLENCE [None]
  - SALIVARY HYPERSECRETION [None]
  - NEUTROPHIL COUNT INCREASED [None]
  - SCHIZOPHRENIA [None]
  - CONSTIPATION [None]
  - IMPULSIVE BEHAVIOUR [None]
  - AGGRESSION [None]
  - PSYCHOTIC DISORDER [None]
  - NEUTROPHIL COUNT DECREASED [None]
  - HAEMORRHOIDS [None]
  - SPEECH DISORDER [None]
  - BODY TEMPERATURE INCREASED [None]
  - VOMITING [None]
  - MENTAL IMPAIRMENT [None]
  - WHITE BLOOD CELL COUNT INCREASED [None]
  - POLYCYTHAEMIA [None]
  - WEIGHT DECREASED [None]
  - LEUKOPENIA [None]
  - AGITATION [None]
